FAERS Safety Report 10165110 (Version 2)
Quarter: 2014Q2

REPORT INFORMATION
  Report Type: Spontaneous
  Country: US (occurrence: US)
  Receive Date: 20140510
  Receipt Date: 20140510
  Transmission Date: 20141212
  Serious: No
  Sender: FDA-Public Use
  Company Number: US-BRISTOL-MYERS SQUIBB COMPANY-19729755

PATIENT
  Age: 86 Year
  Sex: Female
  Weight: 79.36 kg

DRUGS (2)
  1. BYDUREON  2MG SUSPENSION [Suspect]
     Indication: TYPE 2 DIABETES MELLITUS
     Dosage: DOSE INCREASED TO 1 PER 10 DAYS?LOT:73504 EXPDT:JUN16
     Route: 058
     Dates: start: 201309
  2. TRAMADOL [Concomitant]

REACTIONS (10)
  - Injection site mass [Unknown]
  - Injection site pruritus [Unknown]
  - Weight decreased [Unknown]
  - Nasopharyngitis [Unknown]
  - Blood glucose decreased [Unknown]
  - Vision blurred [Unknown]
  - Headache [Unknown]
  - Pain [Unknown]
  - Feeling abnormal [Unknown]
  - Abdominal pain lower [Unknown]
